FAERS Safety Report 5011667-1 (Version None)
Quarter: 2006Q2

REPORT INFORMATION
  Report Type: 
  Country: None (occurrence: None)
  Receive Date: 20060526
  Receipt Date: 20060410
  Transmission Date: 20061013
  Serious: Yes (Other)
  Sender: FDA-Public Use
  Company Number: BE-JNJFOC-20060402493

PATIENT
  Age: 44 Year
  Sex: Male

DRUGS (10)
  1. REMICADE [Suspect]
     Indication: SIGMOIDITIS
     Route: 042
  2. REMICADE [Suspect]
     Indication: PROCTITIS
     Dosage: 2 INFUSIONS SINCE JAN-2006
     Route: 042
  3. CORTICOIDS [Concomitant]
     Route: 065
  4. IMURAN [Concomitant]
     Route: 065
  5. BETNESOL ENEMAS [Concomitant]
     Indication: RECTAL ULCER
     Route: 065
  6. BETNESOL ENEMAS [Concomitant]
     Indication: ULCER
     Route: 065
  7. 5-ASA [Concomitant]
     Indication: RECTAL ULCER
     Route: 065
  8. 5-ASA [Concomitant]
     Indication: ULCER
     Route: 065
  9. ENTOCORT ENEMAS [Concomitant]
     Route: 065
  10. PENTASA [Concomitant]
     Route: 065

REACTIONS (5)
  - FURUNCLE [None]
  - HERPES ZOSTER [None]
  - PNEUMONIA [None]
  - PYREXIA [None]
  - TONGUE ULCERATION [None]
